FAERS Safety Report 18544584 (Version 1)
Quarter: 2020Q4

REPORT INFORMATION
  Report Type: Report from Study
  Country: DO (occurrence: DO)
  Receive Date: 20201125
  Receipt Date: 20201125
  Transmission Date: 20210114
  Serious: Yes (Hospitalization, Other)
  Sender: FDA-Public Use
  Company Number: NVSC2020DO307923

PATIENT
  Sex: Female

DRUGS (1)
  1. KISQALI [Suspect]
     Active Substance: RIBOCICLIB
     Indication: BREAST CANCER
     Dosage: 600 MG (STOP DATE: 2 MONTHS AGO)
     Route: 048
     Dates: start: 20200627

REACTIONS (7)
  - Breast cancer [Unknown]
  - Limb discomfort [Unknown]
  - Asthenia [Unknown]
  - Metastases to central nervous system [Unknown]
  - Paraparesis [Unknown]
  - Malignant neoplasm progression [Unknown]
  - Gait inability [Unknown]
